FAERS Safety Report 5339646-5 (Version None)
Quarter: 2007Q2

REPORT INFORMATION
  Report Type: 
  Country: None (occurrence: None)
  Receive Date: 20070525
  Receipt Date: 20070514
  Transmission Date: 20071010
  Serious: Yes (Other)
  Sender: FDA-Public Use
  Company Number: 2007-158661-NL

PATIENT
  Age: 38 Year
  Sex: Female
  Weight: 93.9 kg

DRUGS (1)
  1. NUVARING [Suspect]
     Indication: CONTRACEPTION
     Dosage: VAGINAL, 3 WKS, 1 WK OUT
     Route: 067
     Dates: start: 20060101

REACTIONS (2)
  - CONVULSION [None]
  - VULVOVAGINAL MYCOTIC INFECTION [None]
